FAERS Safety Report 7416947-8 (Version None)
Quarter: 2011Q2

REPORT INFORMATION
  Report Type: 
  Country: None (occurrence: None)
  Receive Date: 20110415
  Receipt Date: 20110407
  Transmission Date: 20111010
  Serious: Yes (Hospitalization)
  Sender: FDA-Public Use
  Company Number: US-NOVOPROD-326320

PATIENT
  Age: 46 Year
  Sex: Male
  Weight: 95 kg

DRUGS (2)
  1. NOVOLOG MIX 70/30 [Suspect]
     Indication: TYPE 2 DIABETES MELLITUS
     Dosage: 35 U, BID
     Route: 058
     Dates: start: 20080101
  2. AVANDIA [Concomitant]
     Indication: TYPE 2 DIABETES MELLITUS

REACTIONS (3)
  - DIZZINESS [None]
  - BLOOD GLUCOSE INCREASED [None]
  - DRUG DOSE OMISSION [None]
